FAERS Safety Report 24278744 (Version 1)
Quarter: 2024Q3

REPORT INFORMATION
  Report Type: Spontaneous
  Country: US (occurrence: None)
  Receive Date: 20240831
  Receipt Date: 20240831
  Transmission Date: 20241017
  Serious: No
  Sender: Public
  Company Number: None

PATIENT
  Age: 34 Year
  Sex: Female
  Weight: 61 kg

DRUGS (1)
  1. NONOXYNOL-9 [Suspect]
     Active Substance: NONOXYNOL-9
     Indication: Contraception
     Dosage: 1 SUPPOSITORY VAGINAL
     Route: 067
     Dates: start: 20240731, end: 20240731

REACTIONS (5)
  - Dysuria [None]
  - Dysuria [None]
  - Dyspareunia [None]
  - Vulvovaginal burning sensation [None]
  - Vulvovaginal discomfort [None]

NARRATIVE: CASE EVENT DATE: 20240731
